FAERS Safety Report 16576587 (Version 1)
Quarter: 2019Q3

REPORT INFORMATION
  Report Type: Spontaneous
  Country: PL (occurrence: PL)
  Receive Date: 20190716
  Receipt Date: 20190716
  Transmission Date: 20191004
  Serious: Yes (Life-Threatening)
  Sender: FDA-Public Use
  Company Number: PL-TEVA-2019-PL-1077080

PATIENT
  Age: 58 Year
  Sex: Female
  Weight: 91 kg

DRUGS (1)
  1. PACLITAXEL. [Suspect]
     Active Substance: PACLITAXEL
     Indication: BREAST CANCER FEMALE
     Dosage: 160 MG
     Route: 042
     Dates: start: 20190218, end: 20190218

REACTIONS (4)
  - Dyspnoea [Recovered/Resolved]
  - Back pain [Recovered/Resolved]
  - Asthenia [Recovered/Resolved]
  - Contusion [Recovered/Resolved]

NARRATIVE: CASE EVENT DATE: 20190218
